FAERS Safety Report 10183883 (Version 7)
Quarter: 2016Q3

REPORT INFORMATION
  Report Type: Spontaneous
  Country: US (occurrence: US)
  Receive Date: 20140520
  Receipt Date: 20160802
  Transmission Date: 20161108
  Serious: Yes (Disabling, Other)
  Sender: FDA-Public Use
  Company Number: US-009507513-1405USA006479

PATIENT
  Sex: Female
  Weight: 46.26 kg

DRUGS (6)
  1. ALENDRONATE SODIUM. [Suspect]
     Active Substance: ALENDRONATE SODIUM
     Indication: OSTEOPOROSIS
     Dosage: UNK, UNKNOWN
     Route: 065
     Dates: start: 200802, end: 20090504
  2. FOSAMAX [Suspect]
     Active Substance: ALENDRONATE SODIUM
     Dosage: 70 MG, QW
     Route: 048
     Dates: start: 20040621, end: 20100527
  3. FOSAMAX [Suspect]
     Active Substance: ALENDRONATE SODIUM
     Dosage: 70 MG, QW
     Route: 048
     Dates: start: 200308, end: 200704
  4. FOSAMAX PLUS D [Suspect]
     Active Substance: ALENDRONATE SODIUM\CHOLECALCIFEROL
     Indication: OSTEOPOROSIS
     Dosage: 70 MG,/2800IU QW
     Route: 048
     Dates: start: 20071001, end: 20081021
  5. FOSAMAX PLUS D [Suspect]
     Active Substance: ALENDRONATE SODIUM\CHOLECALCIFEROL
     Dosage: 70 MG QW
     Route: 048
     Dates: start: 200704, end: 200901
  6. FOSAMAX [Suspect]
     Active Substance: ALENDRONATE SODIUM
     Indication: OSTEOPOROSIS
     Dosage: 10 MG, QD
     Route: 048
     Dates: start: 20030823

REACTIONS (27)
  - Femoral neck fracture [Unknown]
  - Intramedullary rod insertion [Unknown]
  - Neuropathy peripheral [Unknown]
  - Vision blurred [Unknown]
  - Gastric ulcer [Unknown]
  - Vitamin D deficiency [Unknown]
  - Joint effusion [Unknown]
  - Hormone therapy [Unknown]
  - Back pain [Not Recovered/Not Resolved]
  - Femur fracture [Recovered/Resolved]
  - Intramedullary rod insertion [Unknown]
  - Fractured sacrum [Unknown]
  - Fracture nonunion [Unknown]
  - Joint contracture [Unknown]
  - Low turnover osteopathy [Unknown]
  - Sinusitis [Unknown]
  - Blood disorder [Not Recovered/Not Resolved]
  - Stress fracture [Unknown]
  - Spinal compression fracture [Unknown]
  - Radiculopathy [Unknown]
  - Medical device removal [Unknown]
  - Dry eye [Unknown]
  - Lower limb fracture [Unknown]
  - Calcium deficiency [Unknown]
  - Hip fracture [Unknown]
  - Dry mouth [Unknown]
  - Headache [Unknown]

NARRATIVE: CASE EVENT DATE: 20050202
